FAERS Safety Report 7129699-6 (Version None)
Quarter: 2010Q4

REPORT INFORMATION
  Report Type: 
  Country: None (occurrence: None)
  Receive Date: 20101130
  Receipt Date: 20101021
  Transmission Date: 20110411
  Serious: Yes (Life-Threatening, Other)
  Sender: FDA-Public Use
  Company Number: JP-AMGEN-US381306

PATIENT

DRUGS (12)
  1. ENBREL [Suspect]
     Indication: RHEUMATOID ARTHRITIS
     Dosage: 50 MG, QWK
     Route: 058
     Dates: start: 20090209, end: 20090911
  2. PREDNISOLONE [Concomitant]
     Dosage: 1 MG, QD
     Dates: start: 20090514
  3. ROCALTROL [Concomitant]
     Dosage: 0.5 UNK, QD
  4. LOXOPROFEN [Concomitant]
     Dosage: 120 MG, QD
  5. METOLATE [Concomitant]
     Dosage: 8 MG, QWK
     Dates: end: 20090910
  6. LEUCOVORIN CALCIUM                 /00566702/ [Concomitant]
     Dosage: 2.5 MG, QD
     Dates: end: 20090910
  7. KLARICID [Concomitant]
     Dosage: 200 MG, QD
  8. MECOBALAMIN [Concomitant]
     Dosage: 1500 MCI/A?G, QD
  9. GASTER                             /00661201/ [Concomitant]
     Dosage: 20 MG, QD
  10. BONALON                            /01220301/ [Concomitant]
     Dosage: 35 MG, QWK
  11. AMBROXOL HYDROCHLORIDE [Concomitant]
     Dosage: 45 MG, QD
  12. METHOTREXATE [Concomitant]
     Dosage: 2.5 MG, QWK
     Dates: end: 20090910

REACTIONS (4)
  - BASOSQUAMOUS CARCINOMA [None]
  - BRONCHITIS CHRONIC [None]
  - CONDITION AGGRAVATED [None]
  - PULMONARY VALVE INCOMPETENCE [None]
